FAERS Safety Report 10436325 (Version 2)
Quarter: 2018Q3

REPORT INFORMATION
  Report Type: Spontaneous
  Country: US (occurrence: US)
  Receive Date: 20140904
  Receipt Date: 20180719
  Transmission Date: 20181010
  Serious: Yes (Hospitalization, Other)
  Sender: FDA-Public Use
  Company Number: US-H14001-14-00472

PATIENT
  Age: 85 Year
  Sex: Female
  Weight: 79.1 kg

DRUGS (3)
  1. DEXAMETHASONE. [Suspect]
     Active Substance: DEXAMETHASONE
     Indication: PLASMA CELL MYELOMA
     Route: 042
     Dates: start: 20130517, end: 20130802
  2. CYTOXAN [Suspect]
     Active Substance: CYCLOPHOSPHAMIDE
     Indication: PLASMA CELL MYELOMA
     Route: 042
     Dates: start: 20130517, end: 20130802
  3. VELCADE [Suspect]
     Active Substance: BORTEZOMIB
     Indication: PLASMA CELL MYELOMA
     Route: 058
     Dates: start: 20130517, end: 20130802

REACTIONS (7)
  - Gastritis erosive [Unknown]
  - Gastrointestinal haemorrhage [Recovered/Resolved]
  - Duodenal ulcer [Unknown]
  - Anaemia [Unknown]
  - Blood creatinine increased [Unknown]
  - Cellulitis [Unknown]
  - Oedema peripheral [Recovered/Resolved]

NARRATIVE: CASE EVENT DATE: 20130719
